FAERS Safety Report 6313466-7 (Version None)
Quarter: 2009Q3

REPORT INFORMATION
  Report Type: 
  Country: None (occurrence: None)
  Receive Date: 20090818
  Receipt Date: 20090812
  Transmission Date: 20100115
  Serious: Yes (Hospitalization, Other)
  Sender: FDA-Public Use
  Company Number: GB-JNJFOC-20090803873

PATIENT
  Age: 7 Decade
  Sex: Female

DRUGS (1)
  1. TOPAMAX [Suspect]
     Indication: MIGRAINE PROPHYLAXIS
     Route: 048

REACTIONS (4)
  - DIABETES MELLITUS [None]
  - HEPATITIS [None]
  - LIVER INJURY [None]
  - VISUAL IMPAIRMENT [None]
